FAERS Safety Report 8331705-8 (Version None)
Quarter: 2012Q2

REPORT INFORMATION
  Report Type: 
  Country: None (occurrence: None)
  Receive Date: 20120502
  Receipt Date: 20111121
  Transmission Date: 20120825
  Serious: No
  Sender: FDA-Public Use
  Company Number: US-ASTRAZENECA-2011SE70913

PATIENT
  Age: 69 Year
  Sex: Female
  Weight: 81.6 kg

DRUGS (2)
  1. ENTOCORT EC [Suspect]
     Indication: COLITIS
     Route: 048
     Dates: end: 20110701
  2. LIALDA [Concomitant]

REACTIONS (3)
  - MALAISE [None]
  - OFF LABEL USE [None]
  - DRUG DOSE OMISSION [None]
